FAERS Safety Report 17025786 (Version 11)
Quarter: 2025Q1

REPORT INFORMATION
  Report Type: Spontaneous
  Country: US (occurrence: US)
  Receive Date: 20191113
  Receipt Date: 20250321
  Transmission Date: 20250408
  Serious: Yes (Other)
  Sender: PFIZER
  Company Number: US-PFIZER INC-2019488090

PATIENT
  Age: 63 Year
  Sex: Male
  Weight: 91 kg

DRUGS (19)
  1. XELJANZ [Suspect]
     Active Substance: TOFACITINIB CITRATE
     Indication: Colitis ulcerative
     Dosage: 5 MG, 2X/DAY
     Dates: start: 20190916
  2. XELJANZ [Suspect]
     Active Substance: TOFACITINIB CITRATE
     Dosage: 5 MG, 2X/DAY
  3. XELJANZ [Suspect]
     Active Substance: TOFACITINIB CITRATE
     Dates: start: 2019
  4. XELJANZ [Suspect]
     Active Substance: TOFACITINIB CITRATE
  5. ASACOL [Concomitant]
     Active Substance: MESALAMINE
     Dates: start: 2009
  6. ASPIRIN [Concomitant]
     Active Substance: ASPIRIN
     Dates: start: 2009
  7. VITAMIN D3 [Concomitant]
     Active Substance: CHOLECALCIFEROL
     Dates: start: 2009
  8. DEPAKOTE [Concomitant]
     Active Substance: DIVALPROEX SODIUM
     Dates: start: 2009
  9. DUTASTERIDE [Concomitant]
     Active Substance: DUTASTERIDE
     Dates: start: 2009
  10. LAMICTAL [Concomitant]
     Active Substance: LAMOTRIGINE
     Dates: start: 2009
  11. LIPITOR [Concomitant]
     Active Substance: ATORVASTATIN CALCIUM
     Dates: start: 2009
  12. MAGNESIUM CHLORIDE [Concomitant]
     Active Substance: MAGNESIUM CHLORIDE
     Dates: start: 2009
  13. NEXIUM I.V. [Concomitant]
     Active Substance: ESOMEPRAZOLE SODIUM
     Dates: start: 2009
  14. POTASSIUM CHLORIDE [Concomitant]
     Active Substance: POTASSIUM CHLORIDE
     Dates: start: 2009
  15. PROPRANOLOL [Concomitant]
     Active Substance: PROPRANOLOL HYDROCHLORIDE
     Dates: start: 2009
  16. RISPERIDONE [Concomitant]
     Active Substance: RISPERIDONE
     Dates: start: 2009
  17. TESTOSTERONE [Concomitant]
     Active Substance: TESTOSTERONE
     Dates: start: 2009
  18. ULORIC [Concomitant]
     Active Substance: FEBUXOSTAT
     Dates: start: 2009
  19. WELLBUTRIN [Concomitant]
     Active Substance: BUPROPION HYDROCHLORIDE
     Dates: start: 2009

REACTIONS (4)
  - Deafness unilateral [Unknown]
  - Condition aggravated [Unknown]
  - Polyp [Unknown]
  - Hypoacusis [Unknown]
